FAERS Safety Report 8859740 (Version 1)
Quarter: 2012Q4

REPORT INFORMATION
  Report Type: Report from Study
  Country: US (occurrence: US)
  Receive Date: 20121025
  Receipt Date: 20121025
  Transmission Date: 20130627
  Serious: No
  Sender: FDA-Public Use
  Company Number: US-ABBOTT-12P-163-0907527-00

PATIENT
  Age: 37 None
  Sex: Female
  Weight: 77.18 kg

DRUGS (2)
  1. LUPRON DEPOT 3.75 MG [Suspect]
     Indication: ENDOMETRIOSIS
     Dates: start: 201112
  2. LUPRON DEPOT 3.75 MG [Suspect]
     Dates: start: 2010, end: 2010

REACTIONS (5)
  - Migraine [Not Recovered/Not Resolved]
  - Dizziness [Not Recovered/Not Resolved]
  - Neck pain [Not Recovered/Not Resolved]
  - Blood magnesium decreased [Recovered/Resolved]
  - Migraine [Unknown]
